FAERS Safety Report 5974563-9 (Version None)
Quarter: 2008Q4

REPORT INFORMATION
  Report Type: 
  Country: None (occurrence: None)
  Receive Date: 20081201
  Receipt Date: 20081124
  Transmission Date: 20090506
  Serious: Yes (Other)
  Sender: FDA-Public Use
  Company Number: BR-PFIZER INC-2008099900

PATIENT
  Sex: Female

DRUGS (4)
  1. FRONTAL [Suspect]
     Indication: INSOMNIA
  2. MONOCORDIL [Concomitant]
  3. CRESTOR [Concomitant]
  4. SOMALGIN [Concomitant]
     Route: 065

REACTIONS (2)
  - BREAST CANCER [None]
  - TREMOR [None]
